FAERS Safety Report 14647471 (Version 1)
Quarter: 2018Q1

REPORT INFORMATION
  Report Type: Spontaneous
  Country: NL (occurrence: NL)
  Receive Date: 20180316
  Receipt Date: 20180316
  Transmission Date: 20180509
  Serious: Yes (Hospitalization)
  Sender: FDA-Public Use
  Company Number: PHHY2018NL041777

PATIENT
  Age: 28 Year
  Sex: Female

DRUGS (3)
  1. OXAZEPAM. [Concomitant]
     Active Substance: OXAZEPAM
     Indication: PRODUCT USED FOR UNKNOWN INDICATION
     Route: 065
  2. FLUTICASONPROPIONAAT [Concomitant]
     Indication: PRODUCT USED FOR UNKNOWN INDICATION
     Dosage: 1 DF, UNK
     Route: 065
  3. LAMOTRIGINE. [Suspect]
     Active Substance: LAMOTRIGINE
     Indication: BIPOLAR II DISORDER
     Dosage: 200 MG, QD
     Route: 065
     Dates: start: 20171201

REACTIONS (5)
  - Psychotic symptom [Recovering/Resolving]
  - Suicidal ideation [Recovering/Resolving]
  - Psychiatric decompensation [Recovering/Resolving]
  - Therapeutic response unexpected [Recovering/Resolving]
  - Dissociation [Recovering/Resolving]

NARRATIVE: CASE EVENT DATE: 20180102
